FAERS Safety Report 22011449 (Version 1)
Quarter: 2023Q1

REPORT INFORMATION
  Report Type: Spontaneous
  Country: FR (occurrence: FR)
  Receive Date: 20230220
  Receipt Date: 20230220
  Transmission Date: 20230417
  Serious: Yes (Life-Threatening)
  Sender: FDA-Public Use
  Company Number: None

PATIENT
  Age: 64 Year
  Sex: Female
  Weight: 77 kg

DRUGS (3)
  1. METHOTREXATE SODIUM [Suspect]
     Active Substance: METHOTREXATE SODIUM
     Dosage: 20 MG, WEEKLY
     Route: 048
     Dates: start: 201512, end: 20161219
  2. STELARA [Suspect]
     Active Substance: USTEKINUMAB
     Dosage: 45 MG, CYCLIC (EVERY 4 WEEKS)
     Route: 058
     Dates: start: 20161219, end: 20170119
  3. STELARA [Suspect]
     Active Substance: USTEKINUMAB
     Dosage: 45 MG, CYCLIC (12 WK)
     Route: 058
     Dates: start: 20170119, end: 201907

REACTIONS (1)
  - Lung neoplasm malignant [Not Recovered/Not Resolved]

NARRATIVE: CASE EVENT DATE: 20200127
